FAERS Safety Report 8990701 (Version 1)
Quarter: 2012Q4

REPORT INFORMATION
  Report Type: Spontaneous
  Country: US (occurrence: None)
  Receive Date: 20121226
  Receipt Date: 20121226
  Transmission Date: 20130627
  Serious: Yes (Hospitalization)
  Sender: FDA-Public Use
  Company Number: None

PATIENT
  Age: 68 Year
  Sex: Male
  Weight: 111 kg

DRUGS (2)
  1. LORAZEPAM [Suspect]
     Indication: AGITATION
     Dosage: 0.5 ML ONCE Other
     Dates: start: 20121014, end: 20121014
  2. OXYCODONE [Suspect]
     Indication: PAIN
     Dosage: 5 MG Other PO
     Route: 048
     Dates: start: 20120806, end: 20121114

REACTIONS (3)
  - Sedation [None]
  - Respiratory depression [None]
  - Apnoea [None]
